FAERS Safety Report 7383074-8 (Version None)
Quarter: 2011Q1

REPORT INFORMATION
  Report Type: 
  Country: None (occurrence: None)
  Receive Date: 20110330
  Receipt Date: 20110323
  Transmission Date: 20110831
  Serious: No
  Sender: FDA-Public Use
  Company Number: US-PFIZER INC-2011065790

PATIENT
  Age: 78 Year
  Sex: Female

DRUGS (2)
  1. ZOLOFT [Suspect]
     Dosage: 100 MG, 1X/DAY
  2. SERTRALINE HYDROCHLORIDE [Suspect]
     Dosage: UNK

REACTIONS (3)
  - PARAESTHESIA [None]
  - RHINORRHOEA [None]
  - ADVERSE EVENT [None]
